FAERS Safety Report 10178534 (Version 4)
Quarter: 2014Q2

REPORT INFORMATION
  Report Type: Spontaneous
  Country: GB (occurrence: GB)
  Receive Date: 20140519
  Receipt Date: 20140622
  Transmission Date: 20141212
  Serious: Yes (Other)
  Sender: FDA-Public Use
  Company Number: GB-JNJFOC-20140319507

PATIENT
  Sex: Female

DRUGS (8)
  1. IBUPROFEN [Suspect]
     Indication: PRODUCT USED FOR UNKNOWN INDICATION
     Route: 065
  2. ELIQUIS [Interacting]
     Indication: THROMBOSIS PROPHYLAXIS
     Route: 065
  3. ELIQUIS [Interacting]
     Indication: KNEE ARTHROPLASTY
     Route: 065
  4. ELIQUIS [Interacting]
     Indication: HIP ARTHROPLASTY
     Route: 065
  5. METFORMIN HCL [Interacting]
     Indication: DIABETES MELLITUS
     Route: 065
  6. FLUCLOXACILLIN SODIUM [Suspect]
     Indication: PRODUCT USED FOR UNKNOWN INDICATION
     Route: 065
  7. GENTAMICIN SULFATE [Suspect]
     Indication: PRODUCT USED FOR UNKNOWN INDICATION
     Route: 065
  8. NAPROXEN [Concomitant]
     Indication: INFECTION
     Route: 065

REACTIONS (3)
  - Blood pressure decreased [Unknown]
  - Renal failure [Unknown]
  - Drug interaction [Unknown]
